FAERS Safety Report 8649344 (Version 3)
Quarter: 2012Q4

REPORT INFORMATION
  Report Type: 
  Country: GB (occurrence: GB)
  Receive Date: 20120705
  Receipt Date: 20120906
  Transmission Date: 20130627
  Serious: No
  Sender: FDA-Public Use
  Company Number: GB-JNJFOC-20120611047

PATIENT
  Sex: Female
  Weight: 119 kg

DRUGS (6)
  1. DUROGESIC DTRANS [Suspect]
     Indication: ENTEROCUTANEOUS FISTULA
     Route: 062
     Dates: start: 20120215
  2. DUROGESIC DTRANS [Suspect]
     Indication: ENTEROCUTANEOUS FISTULA
     Route: 062
  3. DUROGESIC DTRANS [Suspect]
     Indication: BACK PAIN
     Route: 062
     Dates: start: 20120215
  4. DUROGESIC DTRANS [Suspect]
     Indication: BACK PAIN
     Route: 062
  5. DUROGESIC DTRANS [Suspect]
     Indication: ABDOMINAL PAIN
     Route: 062
     Dates: start: 20120215
  6. DUROGESIC DTRANS [Suspect]
     Indication: ABDOMINAL PAIN
     Route: 062

REACTIONS (5)
  - Wrong technique in drug usage process [Unknown]
  - Wrong technique in drug usage process [Unknown]
  - Drug effect incomplete [Unknown]
  - Product quality issue [Unknown]
  - Pain [Unknown]
